FAERS Safety Report 4279872-X (Version None)
Quarter: 2004Q1

REPORT INFORMATION
  Report Type: 
  Country: None (occurrence: None)
  Receive Date: 20040126
  Receipt Date: 20040108
  Transmission Date: 20041129
  Serious: Yes (Hospitalization, Other)
  Sender: FDA-Public Use
  Company Number: 8001301

PATIENT
  Age: 34 Year
  Sex: Female
  Weight: 68.5 kg

DRUGS (3)
  1. LEVETIRACETAM [Suspect]
     Indication: EPILEPSY
     Dosage: 1000 MG PO
     Route: 048
     Dates: start: 20021115
  2. GABAPENTIN [Concomitant]
  3. TOPIRMATE [Concomitant]

REACTIONS (4)
  - ABNORMAL BEHAVIOUR [None]
  - BIPOLAR I DISORDER [None]
  - EXCITABILITY [None]
  - SUICIDAL IDEATION [None]
